FAERS Safety Report 22083969 (Version 1)
Quarter: 2023Q1

REPORT INFORMATION
  Report Type: Spontaneous
  Country: CA (occurrence: CA)
  Receive Date: 20230310
  Receipt Date: 20230310
  Transmission Date: 20230417
  Serious: Yes (Hospitalization)
  Sender: FDA-Public Use
  Company Number: CA-PFIZER INC-202300099769

PATIENT
  Age: 87 Year
  Sex: Male

DRUGS (13)
  1. SPIRONOLACTONE [Suspect]
     Active Substance: SPIRONOLACTONE
     Dosage: 25 MG, 1 EVERY 1 DAYS
     Route: 048
  2. ELIQUIS [Suspect]
     Active Substance: APIXABAN
     Dosage: 2.5 MG, 2 EVERY 1 DAYS
     Route: 048
  3. FAMOTIDINE [Suspect]
     Active Substance: FAMOTIDINE
     Dosage: 40 MG, 1 EVERY 1 DAYS
     Route: 048
  4. CHOLECALCIFEROL [Suspect]
     Active Substance: CHOLECALCIFEROL
     Dosage: 2000 IU, 1 EVERY 1 DAYS
     Route: 048
  5. CRESTOR [Suspect]
     Active Substance: ROSUVASTATIN CALCIUM
     Dosage: 20 MG, 1 EVERY 1 DAYS
     Route: 048
  6. DILTIAZEM [Suspect]
     Active Substance: DILTIAZEM
     Dosage: 120 MG, 2 EVERY 1 DAYS
     Route: 048
  7. FERROUS GLUCONATE [Suspect]
     Active Substance: FERROUS GLUCONATE
     Dosage: 300 MG, 3 EVERY 1 DAYS
     Route: 048
  8. LASIX [Suspect]
     Active Substance: FUROSEMIDE
     Dosage: 20 MG, 2 EVERY 1 DAYS
     Route: 048
  9. CARBIDOPA\LEVODOPA [Suspect]
     Active Substance: CARBIDOPA\LEVODOPA
     Dosage: UNK, 4 EVERY 1 DAYS
     Route: 048
  10. MYRBETRIQ [Suspect]
     Active Substance: MIRABEGRON
     Dosage: 25 MG, 1 EVERY 1 DAYS
     Route: 048
  11. RABEPRAZOLE [Suspect]
     Active Substance: RABEPRAZOLE
     Dosage: 20 MG, 2 EVERY 1 DAYS
     Route: 048
  12. SENOKOT [Suspect]
     Active Substance: SENNOSIDES
     Dosage: UNK
  13. TOLTERODINE [Suspect]
     Active Substance: TOLTERODINE
     Dosage: 2 MG, 2 EVERY 1 DAYS
     Route: 048

REACTIONS (5)
  - Cerebral haemorrhage [Recovering/Resolving]
  - Confusional state [Recovering/Resolving]
  - Fall [Recovering/Resolving]
  - Head injury [Recovering/Resolving]
  - Subarachnoid haemorrhage [Recovering/Resolving]
